FAERS Safety Report 7001889-2 (Version None)
Quarter: 2010Q3

REPORT INFORMATION
  Report Type: 
  Country: None (occurrence: None)
  Receive Date: 20100920
  Receipt Date: 20100910
  Transmission Date: 20110219
  Serious: Yes (Death)
  Sender: FDA-Public Use
  Company Number: A0702489A

PATIENT
  Sex: Female

DRUGS (1)
  1. AVANDAMET [Suspect]
     Indication: PRODUCT USED FOR UNKNOWN INDICATION
     Route: 048
     Dates: start: 20060201, end: 20070517

REACTIONS (1)
  - MYOCARDIAL INFARCTION [None]
